FAERS Safety Report 5073904-7 (Version None)
Quarter: 2006Q3

REPORT INFORMATION
  Report Type: 
  Country: None (occurrence: None)
  Receive Date: 20060803
  Receipt Date: 20060726
  Transmission Date: 20061208
  Serious: Yes (Hospitalization)
  Sender: FDA-Public Use
  Company Number: HQWYE392126JUL06

PATIENT
  Age: 24 Year
  Sex: Female

DRUGS (4)
  1. PROTONIX [Suspect]
     Dosage: ^DF^
     Dates: start: 20060601, end: 20060601
  2. PROTONIX [Suspect]
     Dosage: ^DF^
     Dates: start: 20060601
  3. ZELNORM [Suspect]
     Dosage: ^DF^
     Dates: start: 20060601, end: 20060601
  4. ZELNORM [Suspect]
     Dosage: ^DF^
     Dates: start: 20060601

REACTIONS (3)
  - DRUG DOSE OMISSION [None]
  - TREATMENT NONCOMPLIANCE [None]
  - VOMITING [None]
